FAERS Safety Report 11823114 (Version 2)
Quarter: 2016Q1

REPORT INFORMATION
  Report Type: Spontaneous
  Country: NL (occurrence: NL)
  Receive Date: 20151210
  Receipt Date: 20160210
  Transmission Date: 20160525
  Serious: Yes (Other)
  Sender: FDA-Public Use
  Company Number: NL-JNJFOC-20151201202

PATIENT
  Age: 12 Year
  Sex: Male

DRUGS (2)
  1. CONCERTA [Suspect]
     Active Substance: METHYLPHENIDATE HYDROCHLORIDE
     Indication: ATTENTION DEFICIT/HYPERACTIVITY DISORDER
     Route: 048
  2. AMPHETAMINE [Suspect]
     Active Substance: AMPHETAMINE
     Indication: EDUCATIONAL PROBLEM
     Route: 065

REACTIONS (9)
  - Muscle atrophy [Unknown]
  - Mental impairment [Unknown]
  - Depression [Unknown]
  - Asthenia [Unknown]
  - Drug prescribing error [Unknown]
  - Growth retardation [Unknown]
  - Drug abuse [Unknown]
  - Decreased appetite [Unknown]
  - Weight decreased [Unknown]
